FAERS Safety Report 16179677 (Version 1)
Quarter: 2019Q2

REPORT INFORMATION
  Report Type: Spontaneous
  Country: US (occurrence: US)
  Receive Date: 20190409
  Receipt Date: 20190409
  Transmission Date: 20190711
  Serious: Yes (Other)
  Sender: FDA-Public Use
  Company Number: None

PATIENT
  Age: 38 Year
  Sex: Female
  Weight: 54 kg

DRUGS (6)
  1. MULTIVITAMIN [Concomitant]
     Active Substance: VITAMINS
  2. TAPAZOLE [Concomitant]
     Active Substance: METHIMAZOLE
  3. METHIMAZOLE (GENERIC FOR TAPZAOLE) [Suspect]
     Active Substance: METHIMAZOLE
     Indication: HYPERTHYROIDISM
     Dosage: ?          QUANTITY:1 TABLET(S);?
     Route: 048
  4. METHIMAZOLE (GENERIC FOR TAPZAOLE) [Suspect]
     Active Substance: METHIMAZOLE
     Indication: ENDOMETRIOSIS
     Dosage: ?          QUANTITY:1 TABLET(S);?
     Route: 048
  5. INDERAL [Concomitant]
     Active Substance: PROPRANOLOL HYDROCHLORIDE
  6. METHYLFOLATE [Concomitant]
     Active Substance: LEVOMEFOLATE CALCIUM

REACTIONS (6)
  - Symptom recurrence [None]
  - Blood thyroid stimulating hormone decreased [None]
  - Product substitution issue [None]
  - Thyroxine increased [None]
  - Drug ineffective [None]
  - Hyperthyroidism [None]
